FAERS Safety Report 14871187 (Version 2)
Quarter: 2018Q2

REPORT INFORMATION
  Report Type: Spontaneous
  Country: CA (occurrence: CA)
  Receive Date: 20180509
  Receipt Date: 20180525
  Transmission Date: 20180711
  Serious: Yes (Other)
  Sender: FDA-Public Use
  Company Number: CA-PFIZER INC-2018169696

PATIENT
  Age: 49 Year
  Sex: Female

DRUGS (2)
  1. IBRANCE [Suspect]
     Active Substance: PALBOCICLIB
     Indication: METASTATIC RENAL CELL CARCINOMA
     Dosage: 125 MG, CYCLIC(1X/DAY 21 DAYS/28 DAYS)
     Route: 048
     Dates: start: 20180418
  2. IBRANCE [Suspect]
     Active Substance: PALBOCICLIB
     Dosage: 125 MG, CYCLIC(1 X DAY (OD) X 10 DAYS ONLY)
     Route: 048

REACTIONS (2)
  - Product use in unapproved indication [Unknown]
  - Upper limb fracture [Unknown]
